FAERS Safety Report 12918329 (Version 2)
Quarter: 2016Q4

REPORT INFORMATION
  Report Type: Spontaneous
  Country: US (occurrence: US)
  Receive Date: 20161107
  Receipt Date: 20161205
  Transmission Date: 20170207
  Serious: No
  Sender: FDA-Public Use
  Company Number: US-TAIHO ONCOLOGY INC-EU-2016-02847

PATIENT
  Age: 62 Year
  Sex: Male
  Weight: 119.49 kg

DRUGS (18)
  1. PREVACID [Concomitant]
     Active Substance: LANSOPRAZOLE
     Dates: start: 201610
  2. EMEND [Concomitant]
     Active Substance: APREPITANT
     Dosage: NI
  3. FLUOROURACIL. [Concomitant]
     Active Substance: FLUOROURACIL
     Dosage: NI
  4. LASIX [Concomitant]
     Active Substance: FUROSEMIDE
     Dosage: NI
  5. LONSURF [Suspect]
     Active Substance: TIPIRACIL HYDROCHLORIDE\TRIFLURIDINE
     Indication: COLORECTAL CANCER METASTATIC
     Dosage: POST CYCLE ONE
     Route: 048
     Dates: start: 201610
  6. ALOXI [Concomitant]
     Active Substance: PALONOSETRON HYDROCHLORIDE
     Dosage: NI
  7. FUSILEV [Concomitant]
     Active Substance: LEVOLEUCOVORIN CALCIUM
     Dosage: NI
  8. GLYBURIDE. [Concomitant]
     Active Substance: GLYBURIDE
     Dosage: NI
  9. DEXAMETHASONE SODIUM PHOSPHATE. [Concomitant]
     Active Substance: DEXAMETHASONE SODIUM PHOSPHATE
     Dates: start: 201610
  10. ATROPINE SULFATE. [Concomitant]
     Active Substance: ATROPINE SULFATE
     Dosage: NI
  11. IRINOTECAN [Concomitant]
     Active Substance: IRINOTECAN
     Dosage: NI
  12. KEPPRA [Concomitant]
     Active Substance: LEVETIRACETAM
     Dates: start: 201610
  13. POTASSIUM [Concomitant]
     Active Substance: POTASSIUM
     Dates: start: 201610
  14. KLOR-CON M10 [Concomitant]
     Active Substance: POTASSIUM CHLORIDE
     Dosage: NI
  15. GLIMEPIRIDE. [Concomitant]
     Active Substance: GLIMEPIRIDE
     Dates: start: 201610
  16. FUROSEMIDE. [Concomitant]
     Active Substance: FUROSEMIDE
     Dosage: NI
  17. LOVENOX [Concomitant]
     Active Substance: ENOXAPARIN SODIUM
     Dates: start: 201610
  18. LEVETIRACETAM. [Concomitant]
     Active Substance: LEVETIRACETAM
     Dosage: NI

REACTIONS (3)
  - Memory impairment [Not Recovered/Not Resolved]
  - Iron deficiency anaemia [Not Recovered/Not Resolved]
  - Fatigue [Not Recovered/Not Resolved]

NARRATIVE: CASE EVENT DATE: 201610
